FAERS Safety Report 4312076-0 (Version None)
Quarter: 2004Q1

REPORT INFORMATION
  Report Type: 
  Country: None (occurrence: None)
  Receive Date: 20040303
  Receipt Date: 20040202
  Transmission Date: 20041129
  Serious: Yes (Other)
  Sender: FDA-Public Use
  Company Number: FR 2004 0009

PATIENT
  Age: 33 Year
  Sex: Female

DRUGS (1)
  1. DOTAREM- UNKNOWN- MEGLUMINE GADOTERATE (DOTAREM) [Suspect]
     Indication: NUCLEAR MAGNETIC RESONANCE IMAGING
     Dosage: PER DAY INTRA-VEINOUS
     Route: 042

REACTIONS (6)
  - ANAPHYLACTIC SHOCK [None]
  - CONVULSION [None]
  - DRUG HYPERSENSITIVITY [None]
  - GENERALISED ERYTHEMA [None]
  - HYPOTENSION [None]
  - LOSS OF CONSCIOUSNESS [None]
